FAERS Safety Report 25745540 (Version 1)
Quarter: 2025Q3

REPORT INFORMATION
  Report Type: Spontaneous
  Country: US (occurrence: US)
  Receive Date: 20250901
  Receipt Date: 20250901
  Transmission Date: 20251021
  Serious: Yes (Other)
  Sender: pharmaAND
  Company Number: US-Pharmaand-2024000726

PATIENT
  Age: 70 Year
  Sex: Female

DRUGS (2)
  1. PEGASYS [Suspect]
     Active Substance: PEGINTERFERON ALFA-2A
     Indication: Essential thrombocythaemia
     Route: 058
     Dates: start: 202405
  2. PEGASYS [Suspect]
     Active Substance: PEGINTERFERON ALFA-2A
     Indication: Essential thrombocythaemia
     Dates: end: 20240806

REACTIONS (10)
  - Neuropathy peripheral [Not Recovered/Not Resolved]
  - Neutrophil count decreased [Recovered/Resolved]
  - Pain in jaw [Recovered/Resolved]
  - Abdominal pain upper [Not Recovered/Not Resolved]
  - Swollen tongue [Recovered/Resolved]
  - Glossodynia [Recovered/Resolved]
  - Renal pain [Not Recovered/Not Resolved]
  - Renal function test abnormal [Unknown]
  - Off label use [Recovered/Resolved]
  - Essential thrombocythaemia [Recovered/Resolved]
